FAERS Safety Report 17761082 (Version 3)
Quarter: 2020Q4

REPORT INFORMATION
  Report Type: Spontaneous
  Country: DE (occurrence: DE)
  Receive Date: 20200508
  Receipt Date: 20201125
  Transmission Date: 20210113
  Serious: Yes (Other)
  Sender: FDA-Public Use
  Company Number: DE-PFIZER INC-2020182231

PATIENT
  Age: 52 Year
  Sex: Male
  Weight: 99 kg

DRUGS (7)
  1. HERZUMA [Suspect]
     Active Substance: TRASTUZUMAB-PKRB
     Indication: BREAST CANCER
     Dosage: 420 MG, WEEKLY
     Route: 042
     Dates: start: 20200123
  2. LONQUEX [Suspect]
     Active Substance: LIPEGFILGRASTIM
     Indication: BREAST CANCER
     Dosage: 6 MG, WEEKLY
     Route: 058
     Dates: start: 20200123
  3. OCREVUS [Suspect]
     Active Substance: OCRELIZUMAB
     Indication: MULTIPLE SCLEROSIS
     Dosage: 600MG, EVERY 6 MONTHS
     Route: 042
     Dates: start: 20180326
  4. TRASTUZUMAB. [Suspect]
     Active Substance: TRASTUZUMAB
     Indication: BREAST CANCER
     Dosage: 636 MG, WEEKLY
     Route: 041
     Dates: start: 20200123
  5. DOCETAXEL. [Suspect]
     Active Substance: DOCETAXEL
     Indication: BREAST CANCER
     Dosage: 160 MG, WEEKLY
     Route: 042
     Dates: start: 20200123
  6. PERJETA [Suspect]
     Active Substance: PERTUZUMAB
     Indication: BREAST CANCER
     Dosage: 420 MG, WEEKLY
     Route: 042
     Dates: start: 20200123
  7. BONDRONAT [IBANDRONATE SODIUM] [Suspect]
     Active Substance: IBANDRONATE SODIUM
     Indication: BREAST CANCER
     Dosage: UNK, WEEKLY (INJECTION, SOLUTION)
     Route: 042
     Dates: start: 20200123

REACTIONS (3)
  - Cardiac failure [Unknown]
  - Rectal polyp [Recovered/Resolved]
  - Neoplasm progression [Not Recovered/Not Resolved]

NARRATIVE: CASE EVENT DATE: 20191219
